FAERS Safety Report 24729464 (Version 1)
Quarter: 2024Q4

REPORT INFORMATION
  Report Type: Spontaneous
  Country: US (occurrence: US)
  Receive Date: 20241213
  Receipt Date: 20241213
  Transmission Date: 20250114
  Serious: No
  Sender: ACCORD
  Company Number: US-Accord-434798

PATIENT
  Sex: Female

DRUGS (1)
  1. LEVOTHYROXINE SODIUM [Suspect]
     Active Substance: LEVOTHYROXINE SODIUM
     Indication: Thyroid cancer
     Dosage: DAILY

REACTIONS (3)
  - Feeling jittery [Unknown]
  - Feeling abnormal [Unknown]
  - Product solubility abnormal [Unknown]
